FAERS Safety Report 5896139-4 (Version None)
Quarter: 2008Q3

REPORT INFORMATION
  Report Type: 
  Country: None (occurrence: None)
  Receive Date: 20080924
  Receipt Date: 20070722
  Transmission Date: 20090109
  Serious: Yes (Other)
  Sender: FDA-Public Use
  Company Number: US-ASTRAZENECA-2007UW12801

PATIENT
  Age: 13651 Day
  Sex: Male

DRUGS (6)
  1. SEROQUEL [Suspect]
     Indication: POST-TRAUMATIC STRESS DISORDER
     Route: 048
     Dates: start: 20000301
  2. SEROQUEL [Suspect]
     Indication: PARANOIA
     Route: 048
     Dates: start: 20000301
  3. SEROQUEL [Suspect]
     Indication: DEPRESSION
     Route: 048
     Dates: start: 20000301
  4. RISPERDAL [Suspect]
     Indication: POST-TRAUMATIC STRESS DISORDER
     Dates: start: 20000101
  5. RISPERDAL [Suspect]
     Indication: PARANOIA
     Dates: start: 20000101
  6. RISPERDAL [Suspect]
     Indication: DEPRESSION
     Dates: start: 20000101

REACTIONS (2)
  - DIABETES MELLITUS [None]
  - DIABETIC KETOACIDOSIS [None]
